FAERS Safety Report 25282172 (Version 1)
Quarter: 2025Q2

REPORT INFORMATION
  Report Type: Spontaneous
  Country: US (occurrence: US)
  Receive Date: 20250508
  Receipt Date: 20250508
  Transmission Date: 20250716
  Serious: Yes (Other)
  Sender: NEPHRON STERILE COMPOUNDING CENTER, LLC (NSCC), WEST COLUMBIA, SC
  Company Number: US-Nephron Sterile Compounding Center-2176378

PATIENT
  Age: 13 Month

DRUGS (1)
  1. DEL NIDO CARDIOPLEGIA [Suspect]
     Active Substance: LIDOCAINE HYDROCHLORIDE\POTASSIUM CHLORIDE\SODIUM BICARBONATE
     Indication: Aortic stenosis
     Dates: start: 20250423, end: 20250423

REACTIONS (1)
  - Therapeutic product effect decreased [Unknown]

NARRATIVE: CASE EVENT DATE: 20250423
